FAERS Safety Report 11220219 (Version 1)
Quarter: 2015Q2

REPORT INFORMATION
  Report Type: Report from Study
  Country: US (occurrence: US)
  Receive Date: 20150625
  Receipt Date: 20150625
  Transmission Date: 20150821
  Serious: No
  Sender: FDA-Public Use
  Company Number: US-EXELIXIS-CABO-15005445

PATIENT
  Sex: Female

DRUGS (3)
  1. CABOZANTINIB [Suspect]
     Active Substance: CABOZANTINIB
     Indication: THYROID CANCER
     Dosage: 140 MG, QD
     Route: 048
     Dates: start: 20150314, end: 20150603
  2. CABOZANTINIB [Suspect]
     Active Substance: CABOZANTINIB
     Dosage: 40 MG, QD
     Route: 048
     Dates: start: 20150604
  3. ANTIDIARRHEAL [Concomitant]

REACTIONS (3)
  - Mouth ulceration [Unknown]
  - Skin ulcer [Not Recovered/Not Resolved]
  - Hyperkeratosis [Unknown]
